FAERS Safety Report 4908974-7 (Version None)
Quarter: 2006Q1

REPORT INFORMATION
  Report Type: 
  Country: None (occurrence: None)
  Receive Date: 20060209
  Receipt Date: 20060130
  Transmission Date: 20060701
  Serious: Yes (Other)
  Sender: FDA-Public Use
  Company Number: 2006014828

PATIENT
  Age: 50 Year
  Sex: Male
  Weight: 83.9154 kg

DRUGS (2)
  1. SUDAFED 12 HOUR [Suspect]
     Indication: SINUS CONGESTION
     Dosage: TABLET; DOSE UNSPECIFIED, ORAL
     Route: 048
     Dates: end: 20060128
  2. BACTRIM [Concomitant]

REACTIONS (1)
  - URINE FLOW DECREASED [None]
